FAERS Safety Report 7967305-9 (Version None)
Quarter: 2011Q4

REPORT INFORMATION
  Report Type: 
  Country: None (occurrence: None)
  Receive Date: 20111209
  Receipt Date: 20111201
  Transmission Date: 20120403
  Serious: Yes (Other)
  Sender: FDA-Public Use
  Company Number: US-JNJFOC-20111201116

PATIENT
  Sex: Male
  Weight: 145.15 kg

DRUGS (3)
  1. STELARA [Suspect]
     Indication: PSORIATIC ARTHROPATHY
     Route: 058
     Dates: start: 20111031
  2. XANAX [Concomitant]
     Indication: ANXIETY
  3. STELARA [Suspect]
     Indication: PSORIASIS
     Route: 058
     Dates: start: 20111031

REACTIONS (1)
  - EOSINOPHIL COUNT INCREASED [None]
